FAERS Safety Report 4751389-5 (Version None)
Quarter: 2005Q3

REPORT INFORMATION
  Report Type: 
  Country: None (occurrence: None)
  Receive Date: 20050822
  Receipt Date: 20050810
  Transmission Date: 20060218
  Serious: Yes (Hospitalization)
  Sender: FDA-Public Use
  Company Number: 2005114023

PATIENT
  Age: 61 Year
  Sex: Female

DRUGS (5)
  1. LYRICA [Suspect]
     Indication: PAIN
     Dosage: 300 MG, ORAL
     Route: 048
     Dates: start: 20050531, end: 20050729
  2. ZOPICLONE (ZOPICLONE) [Concomitant]
  3. BISOPROLOL (BISOPROLOL) [Concomitant]
  4. DICLOFENAC SODIUM [Concomitant]
  5. INDAPAMIDE [Concomitant]

REACTIONS (6)
  - ANAEMIA [None]
  - CONFUSIONAL STATE [None]
  - HYPONATRAEMIA [None]
  - LIVER FUNCTION TEST ABNORMAL [None]
  - RENAL FAILURE ACUTE [None]
  - VISUAL DISTURBANCE [None]
